FAERS Safety Report 4749532-7 (Version None)
Quarter: 2005Q3

REPORT INFORMATION
  Report Type: 
  Country: None (occurrence: None)
  Receive Date: 20050819
  Receipt Date: 20050819
  Transmission Date: 20060218
  Serious: Yes (Other)
  Sender: FDA-Public Use
  Company Number: None

PATIENT
  Age: 70 Year
  Sex: Male
  Weight: 77.5651 kg

DRUGS (4)
  1. PRIMIDONE [Suspect]
     Dosage: 50 MG BID
  2. METOPROLOL [Concomitant]
  3. HYDROCHLOROTHIAZIDE [Concomitant]
  4. ASPIRIN [Concomitant]

REACTIONS (1)
  - NAUSEA [None]
